FAERS Safety Report 5944606-7 (Version None)
Quarter: 2008Q4

REPORT INFORMATION
  Report Type: 
  Country: None (occurrence: None)
  Receive Date: 20081105
  Receipt Date: 20081023
  Transmission Date: 20090506
  Serious: Yes (Hospitalization)
  Sender: FDA-Public Use
  Company Number: 2008AL010665

PATIENT
  Age: 76 Year
  Sex: Female
  Weight: 64.8644 kg

DRUGS (17)
  1. DIGOXIN [Suspect]
     Indication: MITRAL VALVE PROLAPSE
     Dosage: 0.25MG, DAILY, PO
     Route: 048
     Dates: start: 20060126, end: 20080502
  2. ASPIRIN [Concomitant]
  3. WARFARIN SODIUM [Concomitant]
  4. VITAMIN D [Concomitant]
  5. SULFAMETHOXAZOLE [Concomitant]
  6. OXYBUTYNIN [Concomitant]
  7. LABETALOL HCL [Concomitant]
  8. TOBRADEX [Concomitant]
  9. TETRACYLCINE [Concomitant]
  10. CEFUROXIME [Concomitant]
  11. AZITHROMYCIN [Concomitant]
  12. LEVAQUIN [Concomitant]
  13. AMOXICILLIN [Concomitant]
  14. DETROL [Concomitant]
  15. CYCLOBENZAPRINE HCL [Concomitant]
  16. SIMVASTATIN [Concomitant]
  17. COUMADIN [Concomitant]

REACTIONS (7)
  - CARDIAC ARREST [None]
  - DISCOMFORT [None]
  - HEART RATE DECREASED [None]
  - INTESTINAL ISCHAEMIA [None]
  - PAIN [None]
  - PROCEDURAL COMPLICATION [None]
  - RECTAL HAEMORRHAGE [None]
